FAERS Safety Report 10886764 (Version 2)
Quarter: 2016Q2

REPORT INFORMATION
  Report Type: Spontaneous
  Country: CO (occurrence: CO)
  Receive Date: 20150304
  Receipt Date: 20160601
  Transmission Date: 20160815
  Serious: Yes (Hospitalization, Other)
  Sender: FDA-Public Use
  Company Number: CO-PFIZER INC-2015073917

PATIENT
  Age: 47 Year
  Sex: Male

DRUGS (1)
  1. EPAMIN [Suspect]
     Active Substance: PHENYTOIN SODIUM
     Indication: SEIZURE
     Dosage: 300 MG, UNK
     Route: 048

REACTIONS (4)
  - Amnesia [Unknown]
  - Loss of consciousness [Unknown]
  - Osteoporosis [Unknown]
  - Overdose [Unknown]
